FAERS Safety Report 8401518-7 (Version None)
Quarter: 2012Q2

REPORT INFORMATION
  Report Type: 
  Country: None (occurrence: None)
  Receive Date: 20120529
  Receipt Date: 20120511
  Transmission Date: 20120825
  Serious: Yes (Other)
  Sender: FDA-Public Use
  Company Number: AUR-APL-2012-01593

PATIENT
  Age: 33 Year
  Sex: Male

DRUGS (9)
  1. RAMIPRIL [Suspect]
     Indication: HYPERTENSION
     Dosage: (2.5 MG, 1 D), ORAL
     Route: 048
     Dates: start: 20110822
  2. VENLAFAXINE HCL [Concomitant]
  3. NULYTELY [Concomitant]
  4. RIBAVIRIN [Suspect]
     Indication: HEPATITIS C
     Dosage: (1200 MG), ORAL
     Route: 048
     Dates: start: 20110516
  5. CALCICHEW D3 (LEKOVIT CA) [Concomitant]
  6. CLOZAPINE [Suspect]
     Indication: PRODUCT USED FOR UNKNOWN INDICATION
     Dosage: 50 MG IN THE MORNING AND 300 IN THE NIGHT (100 MG, 2 IN 1 D), ORAL 200 MG (100 MG, 2 IN 1 D), ORAL
     Route: 048
     Dates: start: 20120319, end: 20120401
  7. PEGINTERFERON ALFA-2A [Concomitant]
  8. OMEPRAZOLE [Concomitant]
  9. BECLOMETHASONE DIPROPIONATE [Concomitant]

REACTIONS (3)
  - NEUTROPENIA [None]
  - DRUG INTERACTION [None]
  - WHITE BLOOD CELL COUNT DECREASED [None]
